FAERS Safety Report 21064434 (Version 1)
Quarter: 2022Q3

REPORT INFORMATION
  Report Type: Spontaneous
  Country: BE (occurrence: BE)
  Receive Date: 20220711
  Receipt Date: 20220711
  Transmission Date: 20221027
  Serious: Yes (Disabling)
  Sender: FDA-Public Use
  Company Number: None

PATIENT
  Age: 70 Year
  Sex: Female

DRUGS (1)
  1. VIMPAT [Suspect]
     Active Substance: LACOSAMIDE
     Indication: Product used for unknown indication
     Dosage: 50 MG HALF  DOSAGE FORM TWICE DAILY
     Dates: start: 20220603, end: 20220604

REACTIONS (15)
  - Visual impairment [Unknown]
  - Tension headache [Unknown]
  - Mental impairment [Unknown]
  - Feeling drunk [Unknown]
  - Dysstasia [Unknown]
  - Somnolence [Unknown]
  - Pruritus [Unknown]
  - Fatigue [Unknown]
  - Seizure [Unknown]
  - Blister [Unknown]
  - Dyskinesia [Unknown]
  - Eye swelling [Unknown]
  - Loss of consciousness [Recovered/Resolved]
  - Swelling face [Unknown]
  - Palpitations [Unknown]

NARRATIVE: CASE EVENT DATE: 20220603
